FAERS Safety Report 22360684 (Version 1)
Quarter: 2023Q2

REPORT INFORMATION
  Report Type: Spontaneous
  Country: US (occurrence: US)
  Receive Date: 20230524
  Receipt Date: 20230524
  Transmission Date: 20230722
  Serious: No
  Sender: FDA-Public Use
  Company Number: US-drreddys-LIT/USA/23/0164028

PATIENT
  Age: 77 Year
  Sex: Female

DRUGS (26)
  1. LIDOCAINE [Suspect]
     Active Substance: LIDOCAINE
     Indication: Post herpetic neuralgia
     Route: 061
  2. LIDOCAINE [Suspect]
     Active Substance: LIDOCAINE
     Indication: Neuralgia
  3. LEVETIRACETAM [Suspect]
     Active Substance: LEVETIRACETAM
     Indication: Post herpetic neuralgia
  4. LEVETIRACETAM [Suspect]
     Active Substance: LEVETIRACETAM
     Indication: Neuralgia
  5. CITALOPRAM HYDROBROMIDE [Suspect]
     Active Substance: CITALOPRAM HYDROBROMIDE
     Indication: Post herpetic neuralgia
  6. CITALOPRAM HYDROBROMIDE [Suspect]
     Active Substance: CITALOPRAM HYDROBROMIDE
     Indication: Neuralgia
  7. LAMOTRIGINE [Suspect]
     Active Substance: LAMOTRIGINE
     Indication: Post herpetic neuralgia
     Route: 048
  8. LAMOTRIGINE [Suspect]
     Active Substance: LAMOTRIGINE
     Indication: Neuralgia
  9. VALACYCLOVIR HYDROCHLORIDE [Suspect]
     Active Substance: VALACYCLOVIR HYDROCHLORIDE
     Indication: Post herpetic neuralgia
  10. VALACYCLOVIR HYDROCHLORIDE [Suspect]
     Active Substance: VALACYCLOVIR HYDROCHLORIDE
     Indication: Neuralgia
  11. TEMAZEPAM [Suspect]
     Active Substance: TEMAZEPAM
     Indication: Post herpetic neuralgia
  12. TEMAZEPAM [Suspect]
     Active Substance: TEMAZEPAM
     Indication: Neuralgia
  13. SERTRALINE [Suspect]
     Active Substance: SERTRALINE HYDROCHLORIDE
     Indication: Post herpetic neuralgia
  14. SERTRALINE [Suspect]
     Active Substance: SERTRALINE HYDROCHLORIDE
     Indication: Neuralgia
  15. DULOXETINE [Suspect]
     Active Substance: DULOXETINE
     Indication: Post herpetic neuralgia
  16. DULOXETINE [Suspect]
     Active Substance: DULOXETINE
     Indication: Neuralgia
  17. DESIPRAMINE [Suspect]
     Active Substance: DESIPRAMINE
     Indication: Post herpetic neuralgia
  18. DESIPRAMINE [Suspect]
     Active Substance: DESIPRAMINE
     Indication: Neuralgia
  19. TRAMADOL [Suspect]
     Active Substance: TRAMADOL
     Indication: Post herpetic neuralgia
  20. TRAMADOL [Suspect]
     Active Substance: TRAMADOL
     Indication: Neuralgia
  21. ACETAMINOPHEN\PROPOXYPHENE [Suspect]
     Active Substance: ACETAMINOPHEN\PROPOXYPHENE
     Indication: Post herpetic neuralgia
  22. ACETAMINOPHEN\PROPOXYPHENE [Suspect]
     Active Substance: ACETAMINOPHEN\PROPOXYPHENE
     Indication: Neuralgia
  23. TAPENTADOL [Suspect]
     Active Substance: TAPENTADOL
     Indication: Post herpetic neuralgia
  24. TAPENTADOL [Suspect]
     Active Substance: TAPENTADOL
     Indication: Neuralgia
  25. METHADONE [Suspect]
     Active Substance: METHADONE HYDROCHLORIDE
     Indication: Post herpetic neuralgia
  26. METHADONE [Suspect]
     Active Substance: METHADONE HYDROCHLORIDE
     Indication: Neuralgia

REACTIONS (2)
  - Treatment failure [Unknown]
  - Product use in unapproved indication [Unknown]
